FAERS Safety Report 9135343 (Version 3)
Quarter: 2013Q2

REPORT INFORMATION
  Report Type: Spontaneous
  Country: DE (occurrence: DE)
  Receive Date: 20130304
  Receipt Date: 20130401
  Transmission Date: 20140414
  Serious: Yes (Other)
  Sender: FDA-Public Use
  Company Number: DE-INCYTE CORPORATION-2013IN000386

PATIENT
  Sex: Male

DRUGS (5)
  1. JAKAVI [Suspect]
     Indication: MYELOFIBROSIS
     Dosage: 20 MG, BID
     Route: 048
     Dates: start: 20121206
  2. JAKAVI [Suspect]
     Dosage: 15 MG, BID
     Route: 048
  3. LACTRASE [Concomitant]
  4. ASS/ACETYLSALICYLIC ACID [Concomitant]
  5. PANTOZOL [Concomitant]

REACTIONS (4)
  - Myelofibrosis [Unknown]
  - Malignant neoplasm progression [Not Recovered/Not Resolved]
  - Folliculitis [None]
  - Leukopenia [None]
